FAERS Safety Report 10082932 (Version 1)
Quarter: 2014Q2

REPORT INFORMATION
  Report Type: Spontaneous
  Country: CH (occurrence: CH)
  Receive Date: 20140417
  Receipt Date: 20140417
  Transmission Date: 20141212
  Serious: Yes (Hospitalization)
  Sender: FDA-Public Use
  Company Number: CH-009507513-1404CHE006239

PATIENT
  Age: 71 Year
  Sex: Male
  Weight: 66.8 kg

DRUGS (11)
  1. REMERON [Suspect]
     Dosage: 15 MG, QD
     Route: 048
     Dates: start: 20140307, end: 20140310
  2. CORDARONE [Suspect]
     Dosage: 200 MG, QD
     Route: 048
  3. DISTRANEURIN [Suspect]
     Dosage: UNK, BID,DAILY DOSAGE-1000MG
     Route: 048
     Dates: start: 20140306
  4. DISTRANEURIN [Suspect]
     Dosage: 500 MG, QD ONLY IN THE EVENING
  5. SINTROM [Concomitant]
     Route: 048
  6. PLAVIX [Concomitant]
     Dosage: 75 MG, QD
     Route: 048
  7. BELOC (METOPROLOL SUCCINATE) [Concomitant]
     Dosage: 25 MG, QD
     Route: 048
  8. TOREM [Concomitant]
     Dosage: 10 MG, QD
  9. SIMVASTATIN [Concomitant]
     Dosage: 40 MG, QD
     Route: 048
  10. PANTOZOL [Concomitant]
     Dosage: 20 MG, QD
     Route: 048
  11. DAXAS [Concomitant]
     Dosage: 500 MICROGRAM, QD
     Route: 048

REACTIONS (2)
  - Bradycardia [Recovering/Resolving]
  - Electrocardiogram QT prolonged [Recovering/Resolving]
